FAERS Safety Report 9713843 (Version 1)
Quarter: 2013Q4

REPORT INFORMATION
  Report Type: Spontaneous
  Country: US (occurrence: US)
  Receive Date: 20131126
  Receipt Date: 20131126
  Transmission Date: 20140711
  Serious: Yes (Hospitalization)
  Sender: FDA-Public Use
  Company Number: US-GLAXOSMITHKLINE-A1050804A

PATIENT
  Age: 75 Year
  Sex: Female

DRUGS (8)
  1. ADVAIR [Suspect]
     Indication: PRODUCT USED FOR UNKNOWN INDICATION
     Dosage: 1PUFF TWICE PER DAY
     Route: 055
     Dates: start: 2008
  2. ALBUTEROL NEBULIZER [Concomitant]
  3. SPIRIVA [Concomitant]
  4. OXYGEN [Concomitant]
  5. METOPROLOL [Concomitant]
  6. FLEXERIL [Concomitant]
  7. TYLENOL [Concomitant]
  8. SODIUM CHLORIDE [Concomitant]

REACTIONS (5)
  - Lung infection [Recovering/Resolving]
  - Respiratory tract infection [Unknown]
  - Pneumonia [Unknown]
  - Lung infection pseudomonal [Unknown]
  - Dysphonia [Not Recovered/Not Resolved]
